FAERS Safety Report 5285972-8 (Version None)
Quarter: 2007Q1

REPORT INFORMATION
  Report Type: 
  Country: None (occurrence: None)
  Receive Date: 20070104
  Receipt Date: 20060927
  Transmission Date: 20070707
  Serious: No
  Sender: FDA-Public Use
  Company Number: BDI-008696

PATIENT
  Age: 42 Year
  Sex: Female
  Weight: 59.09 kg

DRUGS (4)
  1. MULTIHANCE [Suspect]
     Indication: GAIT DISTURBANCE
     Dosage: 11 ML ONCE IV
     Route: 042
     Dates: start: 20060925, end: 20060925
  2. MULTIHANCE [Suspect]
     Indication: NUCLEAR MAGNETIC RESONANCE IMAGING BRAIN
     Dosage: 11 ML ONCE IV
     Route: 042
     Dates: start: 20060925, end: 20060925
  3. METHYLPREDNISOLONE 16MG TAB [Concomitant]
  4. ZITHROMAX [Concomitant]

REACTIONS (2)
  - NAUSEA [None]
  - VOMITING [None]
